FAERS Safety Report 5695684-4 (Version None)
Quarter: 2008Q2

REPORT INFORMATION
  Report Type: 
  Country: None (occurrence: None)
  Receive Date: 20080407
  Receipt Date: 20080328
  Transmission Date: 20081010
  Serious: Yes (Hospitalization)
  Sender: FDA-Public Use
  Company Number: JP-BAYER-200810585BYL

PATIENT
  Age: 67 Year
  Sex: Female

DRUGS (9)
  1. ADALAT [Suspect]
     Indication: HYPERTENSION
     Route: 048
     Dates: start: 20071205
  2. ADALAT [Suspect]
     Dosage: TOTAL DAILY DOSE: 40 MG
     Route: 048
     Dates: start: 20080306, end: 20080313
  3. EPOGIN [Concomitant]
     Dosage: TOTAL DAILY DOSE: 9000 IU
     Dates: start: 20080306
  4. NORVASC [Concomitant]
     Indication: HYPERTENSION
     Dosage: TOTAL DAILY DOSE: 5 MG
     Dates: end: 20080305
  5. OLMESARTAN MEDOXOMIL [Concomitant]
     Dosage: TOTAL DAILY DOSE: 20 MG
     Dates: end: 20080305
  6. ALFAROL [Concomitant]
     Dosage: TOTAL DAILY DOSE: 25 ?G
  7. LASIX [Concomitant]
     Dosage: TOTAL DAILY DOSE: 120 MG
  8. NITRODERM [Concomitant]
  9. POTASSIUM L-ASPARTATE [Concomitant]
     Dosage: TOTAL DAILY DOSE: 600 MG  UNIT DOSE: 300 MG

REACTIONS (2)
  - PLATELET COUNT DECREASED [None]
  - RASH [None]
